FAERS Safety Report 9529454 (Version 8)
Quarter: 2014Q1

REPORT INFORMATION
  Report Type: Report from Study
  Country: DE (occurrence: DE)
  Receive Date: 20130917
  Receipt Date: 20140213
  Transmission Date: 20141002
  Serious: Yes (Hospitalization)
  Sender: FDA-Public Use
  Company Number: PHHY2013DE046992

PATIENT
  Age: 78 Year
  Sex: Male

DRUGS (8)
  1. AMN107 [Suspect]
     Indication: CHRONIC MYELOID LEUKAEMIA
     Dosage: 600 MG, DAILY
     Route: 048
     Dates: start: 20110915, end: 20130717
  2. AMN107 [Suspect]
     Dosage: UNK
     Route: 048
     Dates: start: 20130918
  3. BISOPROLOL [Concomitant]
     Indication: ATRIAL FIBRILLATION
     Dosage: 15 MG, PER DAY
     Dates: end: 20130717
  4. BISOPROLOL [Concomitant]
     Indication: LIPIDS INCREASED
     Dosage: 2.5 MG, DAY
     Dates: start: 20130724
  5. MARCUMAR [Concomitant]
     Indication: ATRIAL FIBRILLATION
  6. RAMIPRIL [Concomitant]
     Indication: HYPERTENSION
     Dosage: 25 MG, PER DAY
  7. ALLOPURINOL [Concomitant]
     Indication: PROPHYLAXIS
     Dosage: 300 MG, PER DAY
     Dates: start: 20110830
  8. TAMSULOSIN [Concomitant]
     Indication: BENIGN PROSTATIC HYPERPLASIA
     Dosage: 0.4 MG, PER DAY
     Dates: start: 20111018

REACTIONS (7)
  - Angina unstable [Recovered/Resolved]
  - Chest pain [Recovered/Resolved]
  - Hyperhidrosis [Recovered/Resolved]
  - Coronary artery stenosis [Recovered/Resolved]
  - Atrial fibrillation [Recovering/Resolving]
  - Tachycardia [Recovered/Resolved]
  - Dyspnoea [Recovered/Resolved]
